FAERS Safety Report 19504757 (Version 2)
Quarter: 2021Q3

REPORT INFORMATION
  Report Type: Report from Study
  Country: None (occurrence: US)
  Receive Date: 20210708
  Receipt Date: 20210826
  Transmission Date: 20211014
  Serious: Yes (Hospitalization, Other)
  Sender: FDA-Public Use
  Company Number: US-ABBVIE-21K-163-3799690-00

PATIENT
  Age: 11 Year
  Sex: Female

DRUGS (8)
  1. HUMIRA [Suspect]
     Active Substance: ADALIMUMAB
     Indication: CROHN^S DISEASE
     Dosage: DAY 1?LOADING DOSE
     Route: 058
     Dates: start: 20210208, end: 20210208
  2. HUMIRA [Suspect]
     Active Substance: ADALIMUMAB
     Indication: CROHN^S DISEASE
     Dosage: DAY 29
     Route: 058
     Dates: start: 20210308
  3. HUMIRA [Suspect]
     Active Substance: ADALIMUMAB
     Route: 058
  4. STELARA [Concomitant]
     Active Substance: USTEKINUMAB
     Indication: PRODUCT USED FOR UNKNOWN INDICATION
  5. REMICADE [Concomitant]
     Active Substance: INFLIXIMAB
     Indication: PRODUCT USED FOR UNKNOWN INDICATION
  6. HUMIRA [Suspect]
     Active Substance: ADALIMUMAB
     Indication: CROHN^S DISEASE
     Route: 058
     Dates: start: 2012
  7. HUMIRA [Suspect]
     Active Substance: ADALIMUMAB
     Dosage: DAY 15?LOADING DOSE
     Route: 058
     Dates: start: 20210222, end: 20210222
  8. PROGRAF [Concomitant]
     Active Substance: TACROLIMUS
     Indication: PRODUCT USED FOR UNKNOWN INDICATION

REACTIONS (14)
  - Inflammation [Unknown]
  - Colectomy [Unknown]
  - Malaise [Not Recovered/Not Resolved]
  - Depressed mood [Recovering/Resolving]
  - Vomiting [Unknown]
  - Fear [Not Recovered/Not Resolved]
  - Psoriasis [Unknown]
  - Illness [Unknown]
  - Faeces soft [Not Recovered/Not Resolved]
  - Crohn^s disease [Unknown]
  - Hidradenitis [Unknown]
  - Colon injury [Unknown]
  - Ileostomy [Unknown]
  - Nausea [Unknown]

NARRATIVE: CASE EVENT DATE: 20151107
